FAERS Safety Report 6732363-6 (Version None)
Quarter: 2010Q2

REPORT INFORMATION
  Report Type: 
  Country: None (occurrence: None)
  Receive Date: 20100519
  Receipt Date: 20100511
  Transmission Date: 20101027
  Serious: Yes (Hospitalization)
  Sender: FDA-Public Use
  Company Number: US-ROCHE-674015

PATIENT
  Sex: Female

DRUGS (3)
  1. PEGASYS [Suspect]
     Indication: HEPATITIS C
     Dosage: FORM: PRE-FILLED SYRINGE (PFS)
     Route: 065
     Dates: start: 20091127
  2. PEGASYS [Suspect]
     Dosage: DOSE REDUCED AT WEEK 17
     Route: 065
     Dates: start: 20100319
  3. COPEGUS [Suspect]
     Indication: HEPATITIS C
     Dosage: FORM: PILLS; DIVIDED DOSES (600 MG IN MORNING AND 400 MG IN EVENING); 5 PILLS TWICE DAILY
     Route: 048
     Dates: start: 20091127

REACTIONS (9)
  - CONTUSION [None]
  - CRYING [None]
  - DEPRESSION [None]
  - FEELING GUILTY [None]
  - ILL-DEFINED DISORDER [None]
  - IRRITABILITY [None]
  - LARGE INTESTINE PERFORATION [None]
  - MOOD ALTERED [None]
  - NON-CARDIAC CHEST PAIN [None]
